FAERS Safety Report 14912940 (Version 2)
Quarter: 2018Q2

REPORT INFORMATION
  Report Type: Spontaneous
  Country: US (occurrence: US)
  Receive Date: 20180518
  Receipt Date: 20180622
  Transmission Date: 20180711
  Serious: Yes (Other)
  Sender: FDA-Public Use
  Company Number: US-ASTRAZENECA-2018SE64356

PATIENT
  Sex: Female
  Weight: 52.2 kg

DRUGS (2)
  1. BYDUREON [Suspect]
     Active Substance: EXENATIDE
     Indication: TYPE 2 DIABETES MELLITUS
     Route: 058
  2. BYDUREON [Suspect]
     Active Substance: EXENATIDE
     Indication: TYPE 2 DIABETES MELLITUS
     Route: 058

REACTIONS (7)
  - Hypoacusis [Unknown]
  - Device malfunction [Unknown]
  - Device leakage [Unknown]
  - Weight decreased [Unknown]
  - Transient ischaemic attack [Unknown]
  - Intentional product misuse [Unknown]
  - Product solubility abnormal [Unknown]
